FAERS Safety Report 6439630-4 (Version None)
Quarter: 2009Q4

REPORT INFORMATION
  Report Type: 
  Country: None (occurrence: None)
  Receive Date: 20091111
  Receipt Date: 20091111
  Transmission Date: 20100525
  Serious: Yes (Other)
  Sender: FDA-Public Use
  Company Number: None

PATIENT
  Age: 26 Year
  Sex: Female
  Weight: 83.9154 kg

DRUGS (2)
  1. SEROQUEL XR [Suspect]
     Indication: BIPOLAR DISORDER
     Dosage: 400MG BEDTIME PO
     Route: 048
     Dates: start: 20090321, end: 20090722
  2. LITHIUM CARBONATE [Suspect]
     Indication: SLEEP DISORDER
     Dosage: 300MG MORNING/NIGHT PO
     Route: 048
     Dates: start: 20090801, end: 20090904

REACTIONS (12)
  - ANXIETY [None]
  - CONDITION AGGRAVATED [None]
  - DEPRESSION [None]
  - DIZZINESS [None]
  - EDUCATIONAL PROBLEM [None]
  - HYPERHIDROSIS [None]
  - HYPERVENTILATION [None]
  - PANIC ATTACK [None]
  - SUICIDAL IDEATION [None]
  - SYNCOPE [None]
  - UNEVALUABLE EVENT [None]
  - VISION BLURRED [None]
